FAERS Safety Report 5162418-1 (Version None)
Quarter: 2006Q4

REPORT INFORMATION
  Report Type: 
  Country: None (occurrence: None)
  Receive Date: 20061128
  Receipt Date: 20061128
  Transmission Date: 20070319
  Serious: Yes (Hospitalization, Other)
  Sender: FDA-Public Use
  Company Number: None

PATIENT
  Age: 55 Year
  Sex: Male
  Weight: 84.369 kg

DRUGS (15)
  1. LISINOPRIL [Suspect]
     Indication: HYPERTENSION
     Dosage: 10 MG QAM
     Dates: start: 20030101, end: 20060801
  2. ACETAMINOPHEN [Concomitant]
  3. BENZONATATE [Concomitant]
  4. BENZTROPINE MESYLATE [Concomitant]
  5. BUPROPION HCL [Concomitant]
  6. FLUVASTATIN [Concomitant]
  7. GEMFIBROZIL [Concomitant]
  8. GLIPIZIDE [Concomitant]
  9. GUAIFENESIN [Concomitant]
  10. HYDROXYZINE PAMOATE [Concomitant]
  11. INDOMETHACIN [Concomitant]
  12. LEVALBUTEROL TART [Concomitant]
  13. METFORMIN [Concomitant]
  14. METHOCARBAMOL [Concomitant]
  15. RISPERIDONE [Concomitant]

REACTIONS (7)
  - DYSPHAGIA [None]
  - DYSPHONIA [None]
  - DYSPNOEA [None]
  - ODYNOPHAGIA [None]
  - PHARYNGEAL OEDEMA [None]
  - SWELLING FACE [None]
  - SWOLLEN TONGUE [None]
